FAERS Safety Report 4311031-4 (Version None)
Quarter: 2004Q1

REPORT INFORMATION
  Report Type: 
  Country: None (occurrence: None)
  Receive Date: 20040302
  Receipt Date: 20040216
  Transmission Date: 20041129
  Serious: Yes (Hospitalization)
  Sender: FDA-Public Use
  Company Number: 192485

PATIENT
  Age: 37 Year
  Sex: Female
  Weight: 95.2554 kg

DRUGS (1)
  1. AVONEX [Suspect]
     Indication: MULTIPLE SCLEROSIS
     Dosage: 30 MCG QW IM
     Dates: start: 19960101, end: 20030501

REACTIONS (3)
  - CONDITION AGGRAVATED [None]
  - INTRACRANIAL ANEURYSM [None]
  - MULTIPLE SCLEROSIS [None]
